FAERS Safety Report 7005094-5 (Version None)
Quarter: 2010Q3

REPORT INFORMATION
  Report Type: 
  Country: None (occurrence: None)
  Receive Date: 20100921
  Receipt Date: 20100910
  Transmission Date: 20110219
  Serious: Yes (Other)
  Sender: FDA-Public Use
  Company Number: PHHY2010US60546

PATIENT
  Sex: Female

DRUGS (5)
  1. FEMARA [Suspect]
     Dosage: 2.5 MG, QD
     Route: 048
  2. VITAMIN D [Concomitant]
  3. ASCORBIC ACID [Concomitant]
  4. AMOXICILLIN [Concomitant]
  5. IBUPROFEN [Concomitant]

REACTIONS (3)
  - ORAL SURGERY [None]
  - TOOTH EXTRACTION [None]
  - TOOTH INFECTION [None]
